FAERS Safety Report 23737054 (Version 6)
Quarter: 2024Q3

REPORT INFORMATION
  Report Type: Report from Study
  Country: US (occurrence: US)
  Receive Date: 20240412
  Receipt Date: 20240825
  Transmission Date: 20241016
  Serious: Yes (Hospitalization, Other)
  Sender: TAKEDA
  Company Number: US-TAKEDA-2024TUS033774

PATIENT
  Age: 57 Year
  Sex: Female

DRUGS (3)
  1. VON WILLEBRAND FACTOR (RECOMBINANT) [Suspect]
     Active Substance: VON WILLEBRAND FACTOR (RECOMBINANT)
     Indication: Haemorrhage
     Dosage: 6000 INTERNATIONAL UNIT
     Route: 065
  2. VON WILLEBRAND FACTOR (RECOMBINANT) [Suspect]
     Active Substance: VON WILLEBRAND FACTOR (RECOMBINANT)
     Dosage: 4400 INTERNATIONAL UNIT, 2/WEEK
     Route: 050
  3. VON WILLEBRAND FACTOR (RECOMBINANT) [Suspect]
     Active Substance: VON WILLEBRAND FACTOR (RECOMBINANT)
     Dosage: 4400 INTERNATIONAL UNIT
     Route: 050

REACTIONS (3)
  - Gastrointestinal haemorrhage [Not Recovered/Not Resolved]
  - Rectal haemorrhage [Recovered/Resolved]
  - Product use issue [Unknown]

NARRATIVE: CASE EVENT DATE: 20240403
